FAERS Safety Report 16223779 (Version 1)
Quarter: 2019Q2

REPORT INFORMATION
  Report Type: Spontaneous
  Country: JP (occurrence: JP)
  Receive Date: 20190422
  Receipt Date: 20190422
  Transmission Date: 20190711
  Serious: Yes (Other)
  Sender: FDA-Public Use
  Company Number: JP-JNJFOC-20190428984

PATIENT
  Age: 62 Year
  Sex: Male
  Weight: 72.4 kg

DRUGS (1)
  1. XARELTO [Suspect]
     Active Substance: RIVAROXABAN
     Indication: ATRIAL FIBRILLATION
     Route: 048

REACTIONS (4)
  - Diabetic retinopathy [Unknown]
  - Retinal haemorrhage [Unknown]
  - Percutaneous coronary intervention [Unknown]
  - Off label use [Unknown]
